FAERS Safety Report 13764492 (Version 3)
Quarter: 2017Q3

REPORT INFORMATION
  Report Type: Report from Study
  Country: JP (occurrence: JP)
  Receive Date: 20170718
  Receipt Date: 20170919
  Transmission Date: 20171127
  Serious: Yes (Hospitalization)
  Sender: FDA-Public Use
  Company Number: JP-INCYTE CORPORATION-2017IN005474

PATIENT

DRUGS (12)
  1. BAYASPIRIN [Concomitant]
     Active Substance: ASPIRIN
     Dosage: 100 MG, UNK
  2. AMLODIN [Concomitant]
     Active Substance: AMLODIPINE BESYLATE
  3. GLACTIV [Concomitant]
     Active Substance: SITAGLIPTIN
  4. GLACTIV [Concomitant]
     Active Substance: SITAGLIPTIN
     Indication: POLYCYTHAEMIA VERA
     Dosage: 50 MG, UNK
     Route: 048
  5. GLACTIV [Concomitant]
     Active Substance: SITAGLIPTIN
  6. KETOTIFEN [Concomitant]
     Active Substance: KETOTIFEN
     Indication: POLYCYTHAEMIA VERA
     Dosage: 2 MG, UNK
     Route: 048
     Dates: end: 20160531
  7. BAYASPIRIN [Concomitant]
     Active Substance: ASPIRIN
     Indication: POLYCYTHAEMIA VERA
     Dosage: 100 MG, UNK
     Route: 048
  8. AMLODIN [Concomitant]
     Active Substance: AMLODIPINE BESYLATE
  9. BAYASPIRIN [Concomitant]
     Active Substance: ASPIRIN
     Dosage: 100 MG, UNK
  10. JAKAVI [Suspect]
     Active Substance: RUXOLITINIB
     Indication: POLYCYTHAEMIA VERA
     Dosage: 5 MG, BID
     Route: 048
     Dates: start: 20160511, end: 20160616
  11. JAKAVI [Suspect]
     Active Substance: RUXOLITINIB
     Dosage: 10 MG, BID
     Route: 048
     Dates: start: 20160616
  12. AMLODIN [Concomitant]
     Active Substance: AMLODIPINE BESYLATE
     Indication: POLYCYTHAEMIA VERA
     Dosage: 10 MG, UNK
     Route: 048

REACTIONS (1)
  - Pneumonia [Recovered/Resolved]

NARRATIVE: CASE EVENT DATE: 20170415
